FAERS Safety Report 4633962-8 (Version None)
Quarter: 2005Q2

REPORT INFORMATION
  Report Type: 
  Country: None (occurrence: None)
  Receive Date: 20050412
  Receipt Date: 20050310
  Transmission Date: 20051028
  Serious: Yes (Hospitalization)
  Sender: FDA-Public Use
  Company Number: 2005S1001157

PATIENT
  Sex: Female

DRUGS (1)
  1. FENTANYL [Suspect]
     Dosage: 150 MCG/HR; TDER
     Route: 062

REACTIONS (2)
  - DRUG EFFECT INCREASED [None]
  - THERAPEUTIC AGENT TOXICITY [None]
